FAERS Safety Report 6837090-2 (Version None)
Quarter: 2010Q3

REPORT INFORMATION
  Report Type: 
  Country: None (occurrence: None)
  Receive Date: 20100713
  Receipt Date: 20070703
  Transmission Date: 20110219
  Serious: Yes (Other)
  Sender: FDA-Public Use
  Company Number: US-PFIZER INC-2007036911

PATIENT
  Age: 30 Year
  Sex: Male
  Weight: 68.2 kg

DRUGS (4)
  1. CHANTIX [Suspect]
     Indication: EX-TOBACCO USER
  2. PROZAC [Concomitant]
  3. LORAZEPAM [Concomitant]
  4. AMBIEN [Concomitant]

REACTIONS (1)
  - CONVULSION [None]
